FAERS Safety Report 26020349 (Version 1)
Quarter: 2025Q4

REPORT INFORMATION
  Report Type: Spontaneous
  Country: US (occurrence: None)
  Receive Date: 20251109
  Receipt Date: 20251109
  Transmission Date: 20260118
  Serious: Yes (Life-Threatening)
  Sender: FDA-CTU
  Company Number: None

PATIENT
  Age: 49 Year
  Sex: Male
  Weight: 90 kg

DRUGS (2)
  1. DULOXETINE [Suspect]
     Active Substance: DULOXETINE
     Indication: Depression
     Dates: start: 20100901, end: 20191215
  2. BUPROPION [Concomitant]
     Active Substance: BUPROPION

REACTIONS (15)
  - Loss of personal independence in daily activities [None]
  - Pain [None]
  - Electric shock sensation [None]
  - Feeling abnormal [None]
  - Dysstasia [None]
  - Fall [None]
  - Tremor [None]
  - Movement disorder [None]
  - Fear [None]
  - Anxiety [None]
  - Sleep disorder [None]
  - Heart rate increased [None]
  - Dyspnoea [None]
  - Hallucination [None]
  - Restlessness [None]

NARRATIVE: CASE EVENT DATE: 20200103
